FAERS Safety Report 9570985 (Version 1)
Quarter: 2013Q3

REPORT INFORMATION
  Report Type: Spontaneous
  Country: US (occurrence: None)
  Receive Date: 20130927
  Receipt Date: 20130927
  Transmission Date: 20140515
  Serious: Yes (Hospitalization)
  Sender: FDA-Public Use
  Company Number: None

PATIENT
  Age: 78 Year
  Sex: Female
  Weight: 36.85 kg

DRUGS (2)
  1. RECLAST [Suspect]
     Indication: OSTEOPOROSIS POSTMENOPAUSAL
     Route: 042
  2. RECLAST [Suspect]
     Indication: OSTEOPOROSIS
     Route: 042

REACTIONS (3)
  - Jaw disorder [None]
  - Implant site abscess [None]
  - Osteomyelitis [None]
